FAERS Safety Report 8113814-1 (Version None)
Quarter: 2012Q1

REPORT INFORMATION
  Report Type: 
  Country: None (occurrence: None)
  Receive Date: 20120203
  Receipt Date: 20120130
  Transmission Date: 20120608
  Serious: No
  Sender: FDA-Public Use
  Company Number: US-PFIZER INC-2012025815

PATIENT
  Sex: Female
  Weight: 45.351 kg

DRUGS (5)
  1. NAPROXEN (ALEVE) [Suspect]
     Indication: ARTHRITIS
     Dosage: UNK
  2. CALTRATE [Suspect]
     Dosage: UNK
  3. CELEBREX [Suspect]
     Indication: ARTHRITIS
     Dosage: UNK
  4. MULTI-VITAMINS [Suspect]
     Indication: SUPPLEMENTATION THERAPY
     Dosage: UNK
     Dates: start: 20111201
  5. CALTRATE [Suspect]
     Indication: SUPPLEMENTATION THERAPY
     Dosage: UNK
     Dates: start: 20111201

REACTIONS (5)
  - FEELING ABNORMAL [None]
  - PRURITUS [None]
  - ECZEMA [None]
  - DEPRESSED MOOD [None]
  - NAUSEA [None]
